APPROVED DRUG PRODUCT: DECITABINE
Active Ingredient: DECITABINE
Strength: 50MG/VIAL
Dosage Form/Route: INJECTABLE;INTRAVENOUS
Application: A209056 | Product #001 | TE Code: AP
Applicant: WOCKHARDT BIO AG
Approved: Apr 9, 2019 | RLD: No | RS: No | Type: RX